FAERS Safety Report 24566123 (Version 1)
Quarter: 2024Q4

REPORT INFORMATION
  Report Type: Report from Study
  Country: ES (occurrence: ES)
  Receive Date: 20241030
  Receipt Date: 20241030
  Transmission Date: 20250115
  Serious: Yes (Hospitalization)
  Sender: ABBVIE
  Company Number: ES-ABBVIE-5791085

PATIENT
  Age: 72 Year
  Sex: Male

DRUGS (3)
  1. CARBIDOPA\LEVODOPA [Suspect]
     Active Substance: CARBIDOPA\LEVODOPA
     Indication: Parkinson^s disease
     Dosage: DUODOPA 240 MG/ML + 12 MG/ML SOLUCION PARA PERFUSION
     Route: 058
     Dates: start: 20240322
  2. MOXIFLOXACIN [Concomitant]
     Active Substance: MOXIFLOXACIN
     Indication: Abscess drainage
     Route: 048
     Dates: start: 20240529
  3. ORBENIN [Concomitant]
     Active Substance: CLOXACILLIN SODIUM
     Indication: Abscess
     Route: 042
     Dates: start: 20240529, end: 20240611

REACTIONS (7)
  - Localised infection [Recovered/Resolved]
  - Nodule [Recovered/Resolved]
  - Feeling hot [Unknown]
  - Nodule [Unknown]
  - Skin mass [Recovered/Resolved]
  - Swelling [Unknown]
  - Abscess [Recovered/Resolved]

NARRATIVE: CASE EVENT DATE: 20240501
